FAERS Safety Report 9112529 (Version 1)
Quarter: 2013Q1

REPORT INFORMATION
  Report Type: Spontaneous
  Country: US (occurrence: US)
  Receive Date: 20130211
  Receipt Date: 20130211
  Transmission Date: 20140127
  Serious: Yes (Other)
  Sender: FDA-Public Use
  Company Number: US-BAXTER-2013BAX005213

PATIENT
  Sex: Female
  Weight: 59.09 kg

DRUGS (5)
  1. GAMMAGARD LIQUID [Suspect]
     Indication: IMMUNODEFICIENCY COMMON VARIABLE
     Route: 058
     Dates: start: 20110923
  2. GAMMAGARD LIQUID [Suspect]
     Route: 042
     Dates: start: 201101, end: 201108
  3. DULERA [Concomitant]
     Indication: ASTHMA
     Route: 065
  4. QVAR [Concomitant]
     Indication: ASTHMA
     Route: 065
  5. ZYRTEC [Concomitant]
     Indication: PRODUCT USED FOR UNKNOWN INDICATION
     Route: 065

REACTIONS (3)
  - Gastric ulcer [Recovering/Resolving]
  - Helicobacter gastritis [Recovering/Resolving]
  - Abdominal pain upper [Not Recovered/Not Resolved]
